FAERS Safety Report 17493429 (Version 2)
Quarter: 2021Q1

REPORT INFORMATION
  Report Type: Spontaneous
  Country: US (occurrence: US)
  Receive Date: 20200303
  Receipt Date: 20210303
  Transmission Date: 20210419
  Serious: No
  Sender: FDA-Public Use
  Company Number: US-AMNEAL PHARMACEUTICALS-2019-IPXL-00777

PATIENT
  Sex: Female
  Weight: 61 kg

DRUGS (4)
  1. RYTARY [Suspect]
     Active Substance: CARBIDOPA\LEVODOPA
     Dosage: 36.25/145MG, 1 CAPSULE FOUR TIMES A DAY
     Route: 048
  2. RYTARY [Suspect]
     Active Substance: CARBIDOPA\LEVODOPA
     Indication: PARKINSON^S DISEASE
     Dosage: 36.25/145MG, 2 CAPSULES, 4 /DAY
     Route: 048
  3. RYTARY [Suspect]
     Active Substance: CARBIDOPA\LEVODOPA
     Dosage: 48.75?195MG, 2 CAPSULES EVERY 4 HOURS. 4 DOSES IN 24 HOURS
     Route: 048
  4. RYTARY [Suspect]
     Active Substance: CARBIDOPA\LEVODOPA
     Dosage: 36.25/145MG, 3 CAPSULES, DAILY
     Route: 048

REACTIONS (3)
  - Incorrect dose administered [Unknown]
  - Weight increased [Recovering/Resolving]
  - Therapy cessation [Unknown]
